FAERS Safety Report 15030575 (Version 1)
Quarter: 2018Q2

REPORT INFORMATION
  Report Type: Spontaneous
  Country: US (occurrence: US)
  Receive Date: 20180619
  Receipt Date: 20180619
  Transmission Date: 20180711
  Serious: No
  Sender: FDA-Public Use
  Company Number: US-PFIZER INC-2018243572

PATIENT
  Age: 58 Year
  Sex: Female

DRUGS (2)
  1. METHOTREXATE SODIUM. [Suspect]
     Active Substance: METHOTREXATE SODIUM
     Dosage: UNK
     Dates: start: 201707
  2. FOLIC ACID. [Concomitant]
     Active Substance: FOLIC ACID
     Dosage: 3 MG, DAILY

REACTIONS (4)
  - Dry mouth [Unknown]
  - Rash [Unknown]
  - Condition aggravated [Unknown]
  - Nausea [Unknown]
